FAERS Safety Report 19416354 (Version 1)
Quarter: 2021Q2

REPORT INFORMATION
  Report Type: Spontaneous
  Country: GB (occurrence: GB)
  Receive Date: 20210614
  Receipt Date: 20210614
  Transmission Date: 20210717
  Serious: Yes (Life-Threatening, Other)
  Sender: FDA-Public Use
  Company Number: GB-SAKK-2021SA191087AA

PATIENT
  Age: 50 Year
  Sex: Male

DRUGS (5)
  1. CLOPIDOGREL BISULFATE. [Suspect]
     Active Substance: CLOPIDOGREL BISULFATE
  2. LANSOPRAZOLE. [Concomitant]
     Active Substance: LANSOPRAZOLE
     Indication: HAEMORRHAGE PROPHYLAXIS
  3. ACETYLSALICYLIC ACID [Suspect]
     Active Substance: ASPIRIN
     Indication: ANTIPLATELET THERAPY
     Dosage: 300 MG
  4. REVOLADE [Concomitant]
     Active Substance: ELTROMBOPAG OLAMINE
     Dosage: RESTARTED
  5. REVOLADE [Concomitant]
     Active Substance: ELTROMBOPAG OLAMINE
     Dosage: 75 MG

REACTIONS (9)
  - Platelet count decreased [Unknown]
  - Troponin I increased [Unknown]
  - Coronary artery stenosis [Unknown]
  - Thrombocytosis [Recovered/Resolved]
  - Contusion [Unknown]
  - Carotid artery disease [Unknown]
  - Arteriosclerosis coronary artery [Unknown]
  - Coronary artery disease [Unknown]
  - Thrombosis [Unknown]
